FAERS Safety Report 9920617 (Version 1)
Quarter: 2014Q1

REPORT INFORMATION
  Report Type: Spontaneous
  Country: US (occurrence: US)
  Receive Date: 20140224
  Receipt Date: 20140224
  Transmission Date: 20141002
  Serious: No
  Sender: FDA-Public Use
  Company Number: US-NOVEN-14US008602

PATIENT
  Sex: Female

DRUGS (3)
  1. MINIVELLE [Suspect]
     Indication: HOT FLUSH
     Dosage: 0.0375 MG/DAY X 2, UNK
     Route: 062
     Dates: start: 201311
  2. MINIVELLE [Suspect]
     Dosage: 0.05 MG/DAY, UNK
     Route: 062
     Dates: start: 201311, end: 201311
  3. MINIVELLE [Suspect]
     Dosage: 0.0375 MG/DAY, UNK
     Route: 062
     Dates: start: 201311, end: 201311

REACTIONS (7)
  - Nervousness [Recovered/Resolved]
  - Palpitations [Recovered/Resolved]
  - Headache [Recovered/Resolved]
  - Nausea [Recovered/Resolved]
  - Drug ineffective [Not Recovered/Not Resolved]
  - Wrong technique in drug usage process [Not Recovered/Not Resolved]
  - Inappropriate schedule of drug administration [Not Recovered/Not Resolved]
